FAERS Safety Report 5179164-0 (Version None)
Quarter: 2006Q4

REPORT INFORMATION
  Report Type: 
  Country: None (occurrence: None)
  Receive Date: 20061219
  Receipt Date: 20061206
  Transmission Date: 20070319
  Serious: Yes (Death, Hospitalization)
  Sender: FDA-Public Use
  Company Number: NL-SANOFI-SYNTHELABO-A01200610514

PATIENT
  Age: 66 Year
  Sex: Male

DRUGS (1)
  1. RESONIUM A [Suspect]
     Indication: BLOOD POTASSIUM ABNORMAL
     Route: 065

REACTIONS (3)
  - SEPTIC SHOCK [None]
  - SMALL INTESTINAL PERFORATION [None]
  - SMALL INTESTINE ULCER [None]
